FAERS Safety Report 14645620 (Version 1)
Quarter: 2018Q1

REPORT INFORMATION
  Report Type: Spontaneous
  Country: US (occurrence: US)
  Receive Date: 20180316
  Receipt Date: 20180316
  Transmission Date: 20180509
  Serious: No
  Sender: FDA-Public Use
  Company Number: US-ELI_LILLY_AND_COMPANY-US201803002878

PATIENT
  Age: 65 Year
  Sex: Male

DRUGS (2)
  1. HUMALOG [Suspect]
     Active Substance: INSULIN LISPRO
     Dosage: UNK, UNKNOWNN
     Route: 058
     Dates: start: 20180302
  2. HUMALOG [Suspect]
     Active Substance: INSULIN LISPRO
     Indication: TYPE 2 DIABETES MELLITUS
     Dosage: UNK, UNKNOWNN
     Route: 058
     Dates: start: 201802

REACTIONS (6)
  - Blood glucose increased [Not Recovered/Not Resolved]
  - Pain in extremity [Unknown]
  - Contusion [Unknown]
  - Incorrect dose administered [Unknown]
  - Mobility decreased [Unknown]
  - Fall [Unknown]

NARRATIVE: CASE EVENT DATE: 201802
